FAERS Safety Report 4680475-3 (Version None)
Quarter: 2005Q2

REPORT INFORMATION
  Report Type: 
  Country: None (occurrence: None)
  Receive Date: 20050602
  Receipt Date: 20050310
  Transmission Date: 20051028
  Serious: Yes (Death, Hospitalization)
  Sender: FDA-Public Use
  Company Number: US-MERCK-0503USA02233

PATIENT
  Age: 74 Year
  Sex: Female
  Weight: 72 kg

DRUGS (12)
  1. VIOXX [Suspect]
     Indication: ARTHRALGIA
     Route: 048
     Dates: start: 20010614, end: 20020120
  2. ALTACE [Concomitant]
     Indication: HYPERTENSION
     Route: 065
     Dates: start: 20000301, end: 20011201
  3. COVERA-HS [Concomitant]
     Indication: HYPERTENSION
     Route: 065
     Dates: start: 20000101, end: 20020101
  4. COVERA-HS [Concomitant]
     Indication: ANGINA PECTORIS
     Route: 065
     Dates: start: 20000101, end: 20020101
  5. ASPIRIN [Concomitant]
     Route: 065
  6. ALPRAZOLAM [Concomitant]
     Route: 065
  7. K-DUR 10 [Concomitant]
     Route: 065
  8. GLUCOPHAGE [Concomitant]
     Indication: DIABETES MELLITUS
     Route: 065
  9. PHENAZOPYRIDINE HYDROCHLORIDE [Concomitant]
     Route: 065
  10. SULFATRIM [Concomitant]
     Route: 065
  11. ZOLOFT [Concomitant]
     Route: 065
  12. CALCIUM (UNSPECIFIED) [Concomitant]
     Route: 065

REACTIONS (10)
  - ACUTE MYOCARDIAL INFARCTION [None]
  - CARDIAC ARREST [None]
  - EMOTIONAL DISTRESS [None]
  - HEART RATE DECREASED [None]
  - HYPOXIC ENCEPHALOPATHY [None]
  - LOSS OF CONSCIOUSNESS [None]
  - PUPIL FIXED [None]
  - RHONCHI [None]
  - VENTRICULAR ARRHYTHMIA [None]
  - VENTRICULAR TACHYCARDIA [None]
